FAERS Safety Report 4837513-4 (Version None)
Quarter: 2005Q4

REPORT INFORMATION
  Report Type: 
  Country: None (occurrence: None)
  Receive Date: 20051128
  Receipt Date: 20051123
  Transmission Date: 20060501
  Serious: Yes (Other)
  Sender: FDA-Public Use
  Company Number: AU-GLAXOSMITHKLINE-B0401520A

PATIENT
  Age: 31 Year
  Sex: Male

DRUGS (1)
  1. ZYBAN [Suspect]

REACTIONS (3)
  - AGGRESSION [None]
  - FEELING ABNORMAL [None]
  - VISUAL DISTURBANCE [None]
